FAERS Safety Report 18474011 (Version 4)
Quarter: 2021Q1

REPORT INFORMATION
  Report Type: Spontaneous
  Country: JP (occurrence: JP)
  Receive Date: 20201106
  Receipt Date: 20210126
  Transmission Date: 20210419
  Serious: Yes (Other)
  Sender: FDA-Public Use
  Company Number: JP-ASTRAZENECA-2020SF42609

PATIENT
  Age: 73 Year
  Sex: Male
  Weight: 53 kg

DRUGS (12)
  1. IMFINZI [Suspect]
     Active Substance: DURVALUMAB
     Indication: SMALL CELL LUNG CANCER
     Dosage: 1500.0MG UNKNOWN
     Route: 041
     Dates: start: 20200930, end: 20200930
  2. CBDCA [Suspect]
     Active Substance: CARBOPLATIN
     Indication: SMALL CELL LUNG CANCER
     Dosage: 350.0MG UNKNOWN
     Route: 041
     Dates: start: 20200930, end: 20200930
  3. ETP (ETOPOSIDE) [Suspect]
     Active Substance: ETOPOSIDE
     Indication: SMALL CELL LUNG CANCER
     Dosage: 150 MG, DAY 1, 2, AND 3 OF EVERY COURSE
     Route: 041
     Dates: start: 202010, end: 20201029
  4. IMFINZI [Suspect]
     Active Substance: DURVALUMAB
     Indication: SMALL CELL LUNG CANCER
     Dosage: 1500.0MG UNKNOWN
     Route: 041
     Dates: start: 20201027, end: 20201027
  5. ETP (ETOPOSIDE) [Suspect]
     Active Substance: ETOPOSIDE
     Indication: SMALL CELL LUNG CANCER
     Dosage: 150 MG, DAY 1, 2, AND 3 OF EVERY COURSE
     Route: 041
     Dates: start: 20200930, end: 20201002
  6. ETP (ETOPOSIDE) [Suspect]
     Active Substance: ETOPOSIDE
     Indication: SMALL CELL LUNG CANCER
     Dosage: 150 MG, DAY 1, 2, AND 3 OF EVERY COURSE
     Route: 041
     Dates: start: 20201125, end: 20201127
  7. ANORO [Concomitant]
     Active Substance: UMECLIDINIUM BROMIDE\VILANTEROL TRIFENATATE
     Dosage: DOSE UNKNOWN
     Route: 065
     Dates: start: 20200926
  8. CBDCA [Suspect]
     Active Substance: CARBOPLATIN
     Indication: SMALL CELL LUNG CANCER
     Dosage: 350.0MG UNKNOWN
     Route: 041
     Dates: start: 20201027, end: 20201027
  9. G?LASTA [Suspect]
     Active Substance: PEGFILGRASTIM
     Indication: NEUTROPHIL COUNT DECREASED
     Route: 058
     Dates: start: 20201003, end: 20201003
  10. AMPICILLIN AND SULBACTAM [Concomitant]
     Active Substance: AMPICILLIN SODIUM\SULBACTAM SODIUM
     Route: 065
     Dates: start: 20201021, end: 20201026
  11. IMFINZI [Suspect]
     Active Substance: DURVALUMAB
     Indication: SMALL CELL LUNG CANCER
     Dosage: 1500.0MG UNKNOWN
     Route: 041
     Dates: start: 2020, end: 20201125
  12. CBDCA [Suspect]
     Active Substance: CARBOPLATIN
     Indication: SMALL CELL LUNG CANCER
     Dosage: 350.0MG UNKNOWN
     Route: 041
     Dates: start: 20201125, end: 20201125

REACTIONS (2)
  - Metastases to bone [Unknown]
  - Aortitis [Recovered/Resolved]

NARRATIVE: CASE EVENT DATE: 20201021
